FAERS Safety Report 6646424-3 (Version None)
Quarter: 2010Q1

REPORT INFORMATION
  Report Type: 
  Country: None (occurrence: None)
  Receive Date: 20100323
  Receipt Date: 20100312
  Transmission Date: 20100710
  Serious: Yes (Disabling)
  Sender: FDA-Public Use
  Company Number: CA-SANOFI-AVENTIS-2010SA014715

PATIENT
  Age: 69 Year
  Sex: Female

DRUGS (15)
  1. MULTAQ [Suspect]
     Indication: ATRIAL FIBRILLATION
     Dosage: 400 MG AT BREAKFAST AND 400 MG AT SUPPER
     Route: 048
     Dates: start: 20100303, end: 20100314
  2. AMLODIPINE [Concomitant]
     Route: 048
  3. CLONAZEPAM [Concomitant]
     Route: 048
  4. TOPIRAMATE [Concomitant]
     Indication: FACIAL NEURALGIA
     Route: 048
  5. COUMADIN [Concomitant]
     Indication: ATRIAL FIBRILLATION
     Dosage: VARIYING DOSE
     Route: 048
  6. BISOPROLOL [Concomitant]
     Route: 048
  7. CARBIDOPA-LEVODOPA [Concomitant]
     Route: 048
  8. PRAMIPEXOLE DIHYDROCHLORIDE [Concomitant]
     Route: 048
  9. FUROSEMIDE [Concomitant]
     Route: 048
  10. MAVIK [Concomitant]
     Indication: DRUG USE FOR UNKNOWN INDICATION
     Route: 048
  11. SIMVASTATIN [Concomitant]
     Route: 048
  12. ZOPICLONE [Concomitant]
     Dosage: 7.5 MG AT BEDTIME WHEN NEEDED
     Route: 048
  13. ACTONEL [Concomitant]
     Indication: DRUG USE FOR UNKNOWN INDICATION
     Route: 048
  14. CALCIUM/VITAMIN D [Concomitant]
     Indication: DRUG USE FOR UNKNOWN INDICATION
  15. MULTI-VITAMINS [Concomitant]
     Indication: DRUG USE FOR UNKNOWN INDICATION

REACTIONS (9)
  - ARTHRITIS [None]
  - CHEST PAIN [None]
  - DIZZINESS [None]
  - FATIGUE [None]
  - INTERNATIONAL NORMALISED RATIO DECREASED [None]
  - JOINT SWELLING [None]
  - MYALGIA [None]
  - NODULE ON EXTREMITY [None]
  - PAIN [None]
